FAERS Safety Report 7833435-5 (Version None)
Quarter: 2011Q4

REPORT INFORMATION
  Report Type: 
  Country: None (occurrence: None)
  Receive Date: 20111024
  Receipt Date: 20111018
  Transmission Date: 20120403
  Serious: Yes (Other)
  Sender: FDA-Public Use
  Company Number: US-PURDUE-USA-2011-0076460

PATIENT
  Sex: Male

DRUGS (2)
  1. BUTRANS [Suspect]
     Dosage: 10 MCG/HR, UNK
     Route: 062
     Dates: start: 20111001
  2. BUTRANS [Suspect]
     Indication: PAIN
     Dosage: 5 MCG/HR, UNK
     Route: 062

REACTIONS (2)
  - APPLICATION SITE VESICLES [None]
  - SURGERY [None]
